FAERS Safety Report 9392828 (Version 1)
Quarter: 2013Q3

REPORT INFORMATION
  Report Type: Spontaneous
  Country: US (occurrence: None)
  Receive Date: 20130708
  Receipt Date: 20130708
  Transmission Date: 20140515
  Serious: Yes (Disabling)
  Sender: FDA-Public Use
  Company Number: None

PATIENT
  Age: 69 Year
  Sex: Female
  Weight: 72.58 kg

DRUGS (1)
  1. TAMIFLU [Suspect]
     Indication: INFLUENZA
     Dosage: 2-20-2013 TO 2-29-2013; 1 CAPSULE
     Route: 048
     Dates: start: 20130220, end: 20130228

REACTIONS (2)
  - Ageusia [None]
  - Anosmia [None]
